FAERS Safety Report 12356047 (Version 1)
Quarter: 2016Q2

REPORT INFORMATION
  Report Type: Spontaneous
  Country: None (occurrence: US)
  Receive Date: 20160511
  Receipt Date: 20160511
  Transmission Date: 20160815
  Serious: No
  Sender: FDA-Public Use
  Company Number: US-QOL MEDICAL, LLC-1051919

PATIENT
  Age: 16 Month
  Sex: Male
  Weight: 9.55 kg

DRUGS (2)
  1. IRON [Concomitant]
     Active Substance: IRON
  2. SUCRAID [Suspect]
     Active Substance: SACROSIDASE
     Indication: SUCRASE-ISOMALTASE DEFICIENCY
     Route: 048
     Dates: start: 20150301

REACTIONS (10)
  - Incorrect dose administered [None]
  - Rash [None]
  - Immune system disorder [None]
  - Product quality issue [None]
  - Diarrhoea [Unknown]
  - Drug dispensing error [None]
  - Weight gain poor [None]
  - Abdominal pain [Unknown]
  - Influenza [None]
  - Nasopharyngitis [None]

NARRATIVE: CASE EVENT DATE: 20150815
